FAERS Safety Report 4543190-2 (Version None)
Quarter: 2004Q4

REPORT INFORMATION
  Report Type: 
  Country: None (occurrence: None)
  Receive Date: 20041230
  Receipt Date: 20041230
  Transmission Date: 20050328
  Serious: Yes (Hospitalization)
  Sender: FDA-Public Use
  Company Number: None

PATIENT
  Age: 84 Year
  Sex: Male
  Weight: 70 kg

DRUGS (1)
  1. EPOGEN [Suspect]
     Indication: ANAEMIA OF CHRONIC DISEASE
     Dosage: SUBCUTANEOUS
     Route: 058
     Dates: start: 20040901, end: 20041202

REACTIONS (1)
  - DEEP VEIN THROMBOSIS [None]
